FAERS Safety Report 18289077 (Version 1)
Quarter: 2020Q3

REPORT INFORMATION
  Report Type: Report from Study
  Country: ES (occurrence: ES)
  Receive Date: 20200921
  Receipt Date: 20200921
  Transmission Date: 20201103
  Serious: Yes (Death)
  Sender: FDA-Public Use
  Company Number: ES-PFIZER INC-2020360514

PATIENT

DRUGS (10)
  1. ETOPOSIDE. [Suspect]
     Active Substance: ETOPOSIDE
     Indication: NON-HODGKIN^S LYMPHOMA
     Dosage: 120 MG/M2, CYCLIC ON D1
     Route: 042
  2. METHOTREXATE SODIUM. [Suspect]
     Active Substance: METHOTREXATE SODIUM
     Indication: NON-HODGKIN^S LYMPHOMA
     Dosage: 120 MG/M2, CYCLIC(6 CYCLES), ON DAY 8
     Route: 042
  3. PREDNISONE. [Suspect]
     Active Substance: PREDNISONE
     Indication: NON-HODGKIN^S LYMPHOMA
     Dosage: 60 MG/M2, CYCLIC( FROM D 1?14)(6 CYCLES)
     Route: 048
  4. VINCRISTINE SULFATE. [Suspect]
     Active Substance: VINCRISTINE SULFATE
     Indication: NON-HODGKIN^S LYMPHOMA
     Dosage: 1.4 MG/M2, CYCLIC(6 CYCLES),ON DAY 8
     Route: 042
  5. CALCIUM FOLINATE [Suspect]
     Active Substance: LEUCOVORIN CALCIUM
     Indication: NON-HODGKIN^S LYMPHOMA
     Dosage: 10 MG/M2, EVERY 6 H (FOR 4 DOSES BEGINNING 24 H)(ON DAY 8)(6 CYCLES)
     Route: 048
  6. CYTARABINE. [Suspect]
     Active Substance: CYTARABINE
     Indication: NON-HODGKIN^S LYMPHOMA
     Dosage: 300 MG/M2, CYCLIC(6 CYCLES)ON DAY 8
     Route: 042
  7. BLEOMYCIN [Suspect]
     Active Substance: BLEOMYCIN SULFATE
     Indication: NON-HODGKIN^S LYMPHOMA
     Dosage: UNK, CYCLIC(5 UI/M^2)(6 CYCLES)ON DAY 8
     Route: 042
  8. CYCLOPHOSPHAMIDE. [Suspect]
     Active Substance: CYCLOPHOSPHAMIDE
     Indication: NON-HODGKIN^S LYMPHOMA
     Dosage: 650 MG/M2, CYCLIC, ON D1(6 CYCLES)
     Route: 042
  9. DOXORUBICIN HCL [Suspect]
     Active Substance: DOXORUBICIN HYDROCHLORIDE
     Indication: NON-HODGKIN^S LYMPHOMA
     Dosage: 25 MG/M2, CYCLIC, ON D1(6 CYCLES)
     Route: 042
  10. COTRIMOXAZOLE [Concomitant]
     Active Substance: SULFAMETHOXAZOLE\TRIMETHOPRIM
     Indication: PROPHYLAXIS
     Dosage: 2 DF, (2 DOUBLE?STRENGTH TABLETS 3 TIMES PER WEEK

REACTIONS (2)
  - Haemoptysis [Fatal]
  - Fistula [Fatal]
